FAERS Safety Report 9807407 (Version 2)
Quarter: 2014Q1

REPORT INFORMATION
  Report Type: Report from Study
  Country: US (occurrence: US)
  Receive Date: 20140110
  Receipt Date: 20140305
  Transmission Date: 20141002
  Serious: Yes (Hospitalization)
  Sender: FDA-Public Use
  Company Number: US-ROCHE-1320164

PATIENT
  Sex: Male

DRUGS (21)
  1. LUCENTIS [Suspect]
     Indication: MACULAR OEDEMA
     Route: 050
  2. LUCENTIS [Suspect]
     Indication: DIABETIC RETINAL OEDEMA
  3. TIMOLOL [Concomitant]
     Dosage: BOTH EYES
     Route: 065
  4. BROMDAY [Concomitant]
     Dosage: IN LEFT EYE
     Route: 065
  5. DUREZOL [Concomitant]
     Dosage: IN LEFT EYE
     Route: 065
  6. BESIVANCE [Concomitant]
  7. ZYMAXID [Concomitant]
     Dosage: IN RIGHT EYE
     Route: 065
  8. WARFARIN [Concomitant]
     Route: 065
  9. PRANDIN [Concomitant]
     Route: 065
  10. GLIPIZIDE [Concomitant]
     Route: 065
  11. TAMSULOSIN [Concomitant]
     Route: 065
  12. SIMVASTATIN [Concomitant]
     Route: 065
  13. CARVEDILOL [Concomitant]
     Dosage: DOSE: 3/125 MG
     Route: 065
  14. FAMOTIDINE [Concomitant]
     Route: 065
  15. PLAVIX [Concomitant]
     Route: 065
  16. JANUVIA [Concomitant]
     Route: 065
  17. PRAVASTATIN [Concomitant]
  18. BUMETANIDE [Concomitant]
     Route: 065
  19. OMEPRAZOLE [Concomitant]
     Route: 065
  20. LISINOPRIL [Concomitant]
     Route: 065
  21. ASA [Concomitant]
     Route: 065

REACTIONS (12)
  - Cerebrovascular accident [Recovered/Resolved]
  - Disease progression [Unknown]
  - Therapeutic response decreased [Unknown]
  - Conjunctival haemorrhage [Unknown]
  - Cough [Unknown]
  - Macular cyst [Unknown]
  - Cataract nuclear [Unknown]
  - Retinal exudates [Unknown]
  - Gastrooesophageal reflux disease [Unknown]
  - Retinal haemorrhage [Unknown]
  - Refraction disorder [Unknown]
  - Macular degeneration [Unknown]
